FAERS Safety Report 15795772 (Version 1)
Quarter: 2019Q1

REPORT INFORMATION
  Report Type: Spontaneous
  Country: SK (occurrence: SK)
  Receive Date: 20190107
  Receipt Date: 20190107
  Transmission Date: 20190417
  Serious: Yes (Other)
  Sender: FDA-Public Use
  Company Number: SK-MYLANLABS-2018M1097981

PATIENT
  Age: 58 Year
  Sex: Female

DRUGS (5)
  1. NEUROL                             /00595201/ [Concomitant]
     Active Substance: ALPRAZOLAM
     Dosage: UNK UNK, 1, QD (TWICE A DAY)
  2. ASCORUTIN [Concomitant]
     Active Substance: ASCORBIC ACID\RUTIN
     Indication: CONTUSION
     Dosage: UNK
  3. FLAVOBION [Concomitant]
     Indication: LIVER FUNCTION TEST ABNORMAL
  4. ZODAC [Concomitant]
     Active Substance: CETIRIZINE HYDROCHLORIDE
     Dosage: UNK UNK, QD, 2
  5. ATORVASTATIN [Suspect]
     Active Substance: ATORVASTATIN
     Indication: BLOOD CHOLESTEROL INCREASED
     Dosage: UNK
     Route: 065

REACTIONS (6)
  - Restlessness [Unknown]
  - Mood altered [Unknown]
  - Vertigo [Unknown]
  - Dyspnoea [Unknown]
  - Depressed mood [Unknown]
  - Asthma [Unknown]
